FAERS Safety Report 6011858-7 (Version None)
Quarter: 2008Q4

REPORT INFORMATION
  Report Type: 
  Country: None (occurrence: None)
  Receive Date: 20081216
  Receipt Date: 20080611
  Transmission Date: 20090506
  Serious: Yes (Other)
  Sender: FDA-Public Use
  Company Number: US-WYE-H04450508

PATIENT
  Age: 82 Year
  Sex: Female

DRUGS (7)
  1. EFFEXOR XR [Suspect]
     Indication: DEPRESSION
     Dosage: 75 MG 1X PER 1 DAY ; 225 MG 1X PER 1 DAY ; 150 MG 1X PER 1 DAY
     Dates: end: 20080101
  2. EFFEXOR XR [Suspect]
     Indication: DEPRESSION
     Dosage: 75 MG 1X PER 1 DAY ; 225 MG 1X PER 1 DAY ; 150 MG 1X PER 1 DAY
     Dates: start: 20080101, end: 20080301
  3. EFFEXOR XR [Suspect]
     Indication: DEPRESSION
     Dosage: 75 MG 1X PER 1 DAY ; 225 MG 1X PER 1 DAY ; 150 MG 1X PER 1 DAY
     Dates: start: 20080301
  4. LEVOTHYROXINE SODIUM [Concomitant]
  5. SIMVASTATIN [Concomitant]
  6. NEXIUM [Concomitant]
  7. LORAZEPAM [Concomitant]

REACTIONS (2)
  - CONDITION AGGRAVATED [None]
  - HYPOACUSIS [None]
